FAERS Safety Report 13246984 (Version 1)
Quarter: 2017Q1

REPORT INFORMATION
  Report Type: Spontaneous
  Country: US (occurrence: US)
  Receive Date: 20170217
  Receipt Date: 20170217
  Transmission Date: 20170428
  Serious: No
  Sender: FDA-Public Use
  Company Number: US-PERRIGO-16US015882

PATIENT
  Age: 59 Year
  Sex: Female

DRUGS (1)
  1. CETIRIZINE HYDROCHLORIDE. [Suspect]
     Active Substance: CETIRIZINE HYDROCHLORIDE
     Indication: COUGH
     Dosage: 20 MG  TWICE DAILY AND 10 MG AT BEDTIME
     Route: 048
     Dates: start: 2011

REACTIONS (2)
  - Overdose [Unknown]
  - Off label use [Unknown]

NARRATIVE: CASE EVENT DATE: 2011
